FAERS Safety Report 9526017 (Version 1)
Quarter: 2013Q3

REPORT INFORMATION
  Report Type: Spontaneous
  Country: US (occurrence: US)
  Receive Date: 20130916
  Receipt Date: 20130916
  Transmission Date: 20140515
  Serious: No
  Sender: FDA-Public Use
  Company Number: US-B.I. PHARMACEUTICALS,INC./RIDGEFIELD-2013-BI-27326BP

PATIENT
  Age: 48 Year
  Sex: Male
  Weight: 109 kg

DRUGS (3)
  1. TRADJENTA [Suspect]
     Indication: TYPE 2 DIABETES MELLITUS
     Dosage: 5 MG
     Route: 048
     Dates: start: 20130501, end: 20130819
  2. JENTADUETO [Suspect]
     Indication: TYPE 2 DIABETES MELLITUS
     Dosage: DOSE PER APPLICATION: 2.5 MG / 1000 MG; DAILY DOSE: 5MG/2000MG
     Route: 048
     Dates: start: 20130501, end: 20130819
  3. NOVALOG [Concomitant]
     Indication: TYPE 2 DIABETES MELLITUS
     Dosage: FORMULATION: SUBCUTANEOUS, STRENGTH: 30 UNITS; DAILY DOSE: 30 UNITS
     Route: 058

REACTIONS (1)
  - Hepatic enzyme increased [Not Recovered/Not Resolved]
